FAERS Safety Report 10249714 (Version 5)
Quarter: 2016Q3

REPORT INFORMATION
  Report Type: Report from Study
  Country: US (occurrence: US)
  Receive Date: 20140620
  Receipt Date: 20160915
  Transmission Date: 20161109
  Serious: Yes (Other)
  Sender: FDA-Public Use
  Company Number: US-SA-2014SA079065

PATIENT
  Age: 54 Year
  Sex: Male

DRUGS (1)
  1. AUBAGIO [Suspect]
     Active Substance: TERIFLUNOMIDE
     Indication: MULTIPLE SCLEROSIS
     Route: 048
     Dates: start: 20140524

REACTIONS (4)
  - Optic neuritis [Recovering/Resolving]
  - Visual field defect [Recovering/Resolving]
  - Asthenia [Recovered/Resolved]
  - Blindness unilateral [Recovering/Resolving]

NARRATIVE: CASE EVENT DATE: 2014
